FAERS Safety Report 23925677 (Version 2)
Quarter: 2024Q2

REPORT INFORMATION
  Report Type: Report from Study
  Country: IN (occurrence: IN)
  Receive Date: 20240531
  Receipt Date: 20240613
  Transmission Date: 20240716
  Serious: Yes (Hospitalization, Other)
  Sender: FDA-Public Use
  Company Number: IN-002147023-NVSC2024IN114336

PATIENT
  Age: 35 Year
  Sex: Male

DRUGS (1)
  1. NEORAL [Suspect]
     Active Substance: CYCLOSPORINE
     Indication: Renal transplant
     Dosage: 75 MG, BID
     Route: 048
     Dates: start: 20231108

REACTIONS (5)
  - Transplant dysfunction [Recovered/Resolved]
  - Splenic abscess [Recovered/Resolved]
  - Lymphadenopathy [Recovered/Resolved]
  - Sepsis [Recovered/Resolved]
  - Splenomegaly [Unknown]

NARRATIVE: CASE EVENT DATE: 20240508
